FAERS Safety Report 8044461-8 (Version None)
Quarter: 2011Q4

REPORT INFORMATION
  Report Type: 
  Country: None (occurrence: None)
  Receive Date: 20111202
  Receipt Date: 20101228
  Transmission Date: 20120403
  Serious: Yes (Other)
  Sender: FDA-Public Use
  Company Number: 2011SP000349

PATIENT
  Age: 35 Year
  Sex: Female
  Weight: 89.8122 kg

DRUGS (1)
  1. NUVARING [Suspect]
     Indication: PRODUCT USED FOR UNKNOWN INDICATION
     Dates: start: 20050901, end: 20070109

REACTIONS (2)
  - LIGAMENT SPRAIN [None]
  - DEEP VEIN THROMBOSIS [None]
